FAERS Safety Report 9553474 (Version 1)
Quarter: 2013Q3

REPORT INFORMATION
  Report Type: Spontaneous
  Country: GR (occurrence: GR)
  Receive Date: 20130925
  Receipt Date: 20130925
  Transmission Date: 20140515
  Serious: Yes (Hospitalization, Other)
  Sender: FDA-Public Use
  Company Number: GR-GILEAD-2013-0084065

PATIENT
  Age: 68 Year
  Sex: Male

DRUGS (6)
  1. RANOLAZINE [Suspect]
     Indication: ANGINA PECTORIS
     Dosage: 500 MG, BID
     Dates: start: 2012, end: 2012
  2. RANOLAZINE [Suspect]
     Dosage: 375 MG, BID
     Dates: start: 2011, end: 2012
  3. IMDUR [Concomitant]
     Indication: ANGINA PECTORIS
     Dosage: 60 MG, QD
  4. DILATREND [Concomitant]
     Indication: CORONARY ARTERY DISEASE
     Dosage: 6.25 MG, BID
  5. SALOSPIR [Concomitant]
     Indication: CORONARY ARTERY DISEASE
     Dosage: 100 MG, QD
  6. CRESTOR [Concomitant]
     Indication: CORONARY ARTERY DISEASE
     Dosage: 40 MG, QD

REACTIONS (2)
  - Loss of consciousness [Recovered/Resolved]
  - Dizziness [Recovered/Resolved]
